FAERS Safety Report 13713523 (Version 1)
Quarter: 2017Q3

REPORT INFORMATION
  Report Type: Other
  Country: CA (occurrence: CA)
  Receive Date: 20170704
  Receipt Date: 20170704
  Transmission Date: 20171127
  Serious: Yes (Hospitalization, Other)
  Sender: FDA-Public Use
  Company Number: CA-APOTEX-2017AP013551

PATIENT
  Age: 885 Month
  Sex: Female
  Weight: 100 kg

DRUGS (10)
  1. DABIGATRAN [Concomitant]
     Active Substance: DABIGATRAN
     Indication: CEREBROVASCULAR ACCIDENT
     Dosage: 110 MG, BID
     Route: 048
  2. APO-QUETIAPINE [Suspect]
     Active Substance: QUETIAPINE
     Indication: NIGHTMARE
     Dosage: 150 MG, QD
     Route: 048
  3. DIGOXIN. [Concomitant]
     Active Substance: DIGOXIN
     Indication: HEART RATE ABNORMAL
     Dosage: 0.25 MG, QD
     Route: 048
  4. MORPHINE [Concomitant]
     Active Substance: MORPHINE
     Indication: PRODUCT USED FOR UNKNOWN INDICATION
     Route: 065
  5. PANTOPRAZOLE SODIUM. [Concomitant]
     Active Substance: PANTOPRAZOLE SODIUM
     Indication: ULCER
     Dosage: 40 MG, UNK
     Route: 048
  6. DIGOXIN. [Concomitant]
     Active Substance: DIGOXIN
     Indication: BLOOD PRESSURE ABNORMAL
  7. APO-QUETIAPINE [Suspect]
     Active Substance: QUETIAPINE
     Indication: INSOMNIA
     Dosage: 50 MG, QD
     Route: 048
  8. APO-METOPROLOL [Concomitant]
     Active Substance: METOPROLOL
     Indication: CARDIAC DISORDER
     Dosage: 100 MG, BID
     Route: 048
  9. APO-QUETIAPINE [Suspect]
     Active Substance: QUETIAPINE
     Indication: PSYCHOTIC DISORDER
     Dosage: 75 MG, QD
     Route: 048
  10. SUBLINGUAL B12 [Concomitant]
     Indication: VITAMIN B12 DEFICIENCY
     Route: 058

REACTIONS (14)
  - Loss of consciousness [Unknown]
  - Abdominal discomfort [Unknown]
  - Anxiety [Unknown]
  - Intentional product misuse [Unknown]
  - Rhinorrhoea [Unknown]
  - Asthenia [Unknown]
  - Weight increased [Unknown]
  - Depression [Unknown]
  - Psychotic disorder [Unknown]
  - Hyperhidrosis [Unknown]
  - Dysarthria [Unknown]
  - Liver disorder [Unknown]
  - Thirst [Unknown]
  - Fatigue [Unknown]
